FAERS Safety Report 5506270-0 (Version None)
Quarter: 2007Q4

REPORT INFORMATION
  Report Type: 
  Country: None (occurrence: None)
  Receive Date: 20071105
  Receipt Date: 20071024
  Transmission Date: 20080405
  Serious: Yes (Death, Other)
  Sender: FDA-Public Use
  Company Number: JP-JNJFOC-20071007139

PATIENT
  Sex: Female
  Weight: 47 kg

DRUGS (13)
  1. REMICADE [Suspect]
     Route: 042
  2. REMICADE [Suspect]
     Route: 042
  3. REMICADE [Suspect]
     Route: 042
  4. REMICADE [Suspect]
     Route: 042
  5. REMICADE [Suspect]
     Indication: RHEUMATOID ARTHRITIS
     Route: 042
  6. RHEUMATREX [Suspect]
     Indication: RHEUMATOID ARTHRITIS
     Route: 048
  7. BONALON [Suspect]
     Indication: DRUG USE FOR UNKNOWN INDICATION
     Route: 048
  8. AZULFIDINE EN-TABS [Concomitant]
     Indication: RHEUMATOID ARTHRITIS
     Route: 048
  9. NABOAL SR [Concomitant]
     Indication: RHEUMATOID ARTHRITIS
     Route: 048
  10. TAGAMET [Concomitant]
     Route: 048
  11. DILTIAZEM HCL [Concomitant]
     Indication: HYPERTENSION
     Route: 048
  12. HIGH CALORIE INFUSION [Concomitant]
     Indication: MALNUTRITION
  13. PREDONINE [Concomitant]
     Indication: RHEUMATOID ARTHRITIS
     Route: 048

REACTIONS (2)
  - DIFFUSE LARGE B-CELL LYMPHOMA [None]
  - PNEUMONIA FUNGAL [None]
